FAERS Safety Report 5226437-9 (Version None)
Quarter: 2007Q1

REPORT INFORMATION
  Report Type: 
  Country: None (occurrence: None)
  Receive Date: 20070201
  Receipt Date: 20070119
  Transmission Date: 20070707
  Serious: Yes (Other)
  Sender: FDA-Public Use
  Company Number: US-ELI_LILLY_AND_COMPANY-US200701004710

PATIENT
  Age: 68 Year
  Sex: Male

DRUGS (2)
  1. FORTEO [Suspect]
     Indication: OSTEOPOROSIS
     Dates: start: 20060601
  2. LEXAPRO [Concomitant]

REACTIONS (3)
  - CONVULSION [None]
  - HYPOTONIA [None]
  - MEMORY IMPAIRMENT [None]
